FAERS Safety Report 4820344-9 (Version None)
Quarter: 2005Q4

REPORT INFORMATION
  Report Type: 
  Country: None (occurrence: None)
  Receive Date: 20051014
  Receipt Date: 20050801
  Transmission Date: 20060501
  Serious: No
  Sender: FDA-Public Use
  Company Number: 2005SP002157

PATIENT
  Sex: Female

DRUGS (2)
  1. LUNESTA [Suspect]
     Indication: FIBROMYALGIA
     Dosage: 2 MG;HS;ORAL    3 MG;HS;ORAL
     Route: 048
     Dates: start: 20050101, end: 20050801
  2. LUNESTA [Suspect]
     Indication: FIBROMYALGIA
     Dosage: 2 MG;HS;ORAL    3 MG;HS;ORAL
     Route: 048
     Dates: start: 20050101, end: 20050801

REACTIONS (3)
  - HEADACHE [None]
  - INSOMNIA [None]
  - NIGHTMARE [None]
